FAERS Safety Report 14262822 (Version 4)
Quarter: 2018Q2

REPORT INFORMATION
  Report Type: Spontaneous
  Country: FR (occurrence: FR)
  Receive Date: 20171208
  Receipt Date: 20180612
  Transmission Date: 20180711
  Serious: Yes (Death, Life-Threatening, Hospitalization, Other)
  Sender: FDA-Public Use
  Company Number: FR-ACCORD-061688

PATIENT
  Age: 71 Year
  Sex: Female

DRUGS (2)
  1. METHOTREXATE. [Suspect]
     Active Substance: METHOTREXATE
     Indication: RHEUMATOID ARTHRITIS
  2. PREDNISONE/PREDNISONE ACETATE [Suspect]
     Active Substance: PREDNISONE ACETATE
     Indication: RHEUMATOID ARTHRITIS

REACTIONS (15)
  - Acute kidney injury [Fatal]
  - Systemic inflammatory response syndrome [Fatal]
  - Weight decreased [None]
  - Dehydration [Fatal]
  - Food poisoning [None]
  - Diarrhoea [None]
  - Hypotension [None]
  - Cardiogenic shock [Fatal]
  - Abdominal pain [None]
  - Tachycardia [None]
  - Pyrexia [None]
  - Anaemia macrocytic [Fatal]
  - Cardiac failure acute [Fatal]
  - Mucosal dryness [None]
  - Isosporiasis [Fatal]

NARRATIVE: CASE EVENT DATE: 201612
